FAERS Safety Report 6355570-3 (Version None)
Quarter: 2009Q3

REPORT INFORMATION
  Report Type: 
  Country: None (occurrence: None)
  Receive Date: 20090910
  Receipt Date: 20090825
  Transmission Date: 20100115
  Serious: Yes (Hospitalization)
  Sender: FDA-Public Use
  Company Number: 2009AL004861

PATIENT
  Sex: Male

DRUGS (8)
  1. DIGOXIN [Suspect]
     Dosage: PO
     Route: 048
     Dates: start: 20071201
  2. NEURONTIN [Concomitant]
  3. METFORMIN HCL [Concomitant]
  4. COREG [Concomitant]
  5. LISINOPRIL [Concomitant]
  6. LYRICA [Concomitant]
  7. FLEXERIL [Concomitant]
  8. NAPROSYN [Concomitant]

REACTIONS (9)
  - ANXIETY [None]
  - CARDIAC FAILURE CONGESTIVE [None]
  - EMOTIONAL DISTRESS [None]
  - HYPERGLYCAEMIA [None]
  - HYPERTENSION [None]
  - ILL-DEFINED DISORDER [None]
  - MULTIPLE INJURIES [None]
  - MUSCULOSKELETAL CHEST PAIN [None]
  - PAIN [None]
